FAERS Safety Report 8005479-4 (Version None)
Quarter: 2011Q4

REPORT INFORMATION
  Report Type: 
  Country: None (occurrence: None)
  Receive Date: 20111223
  Receipt Date: 20111206
  Transmission Date: 20120403
  Serious: No
  Sender: FDA-Public Use
  Company Number: CA-ELI_LILLY_AND_COMPANY-CA201111002395

PATIENT
  Sex: Female
  Weight: 82 kg

DRUGS (17)
  1. RAMIPRIL [Concomitant]
  2. HYDROMORPH [Concomitant]
  3. ARTHROTEC [Concomitant]
  4. NEURONTIN [Concomitant]
     Dosage: 900 MG, TID
  5. ELAVIL [Concomitant]
     Dosage: 75 MG, EVERY 8 HRS
  6. VITAMIN D [Concomitant]
     Dosage: 1000 IU, QD
  7. LASIX [Concomitant]
     Dosage: 40 MG, QD
  8. FORTEO [Suspect]
     Indication: OSTEOPOROSIS
     Dosage: 20 UG, QD
     Route: 058
  9. AMITRIPTYLINE [Concomitant]
  10. HYDROCHLOROTHIAZIDE [Concomitant]
     Dosage: 25 MG, QD
  11. LIPITOR [Concomitant]
  12. WELLBUTRIN [Concomitant]
  13. PLAVIX [Concomitant]
     Dosage: 75 MG, QD
  14. ATORVASTAN [Concomitant]
     Dosage: 10 MG, QD
  15. CALCIUM CARBONATE [Concomitant]
     Dosage: 600 MG, QD
  16. GABAPENTIN [Concomitant]
  17. HYDROMORPHONE HCL [Concomitant]
     Dosage: 6 MG, OTHER

REACTIONS (2)
  - IMPAIRED HEALING [None]
  - OFF LABEL USE [None]
